FAERS Safety Report 14534730 (Version 1)
Quarter: 2018Q1

REPORT INFORMATION
  Report Type: Other
  Country: PL (occurrence: PL)
  Receive Date: 20180215
  Receipt Date: 20180215
  Transmission Date: 20180509
  Serious: Yes (Other)
  Sender: FDA-Public Use
  Company Number: PL-GLENMARK PHARMACEUTICALS-2017GMK031871

PATIENT

DRUGS (6)
  1. ROSUVASTATIN CALCIUM. [Suspect]
     Active Substance: ROSUVASTATIN CALCIUM
     Indication: PRODUCT USED FOR UNKNOWN INDICATION
     Dosage: UNK
     Route: 065
  2. NILOTINIB [Suspect]
     Active Substance: NILOTINIB
     Indication: CHRONIC MYELOID LEUKAEMIA
     Dosage: 400 MG, BID (2X DAILY)
     Route: 065
  3. INSULIN [Concomitant]
     Active Substance: INSULIN NOS
     Indication: DIABETIC RETINOPATHY
     Dosage: UNK
     Route: 065
  4. ROSUVASTATIN CALCIUM. [Suspect]
     Active Substance: ROSUVASTATIN CALCIUM
     Dosage: UNK
     Route: 065
  5. ROSUVASTATIN CALCIUM. [Suspect]
     Active Substance: ROSUVASTATIN CALCIUM
     Dosage: UNK
     Route: 065
  6. NILOTINIB [Suspect]
     Active Substance: NILOTINIB
     Dosage: 400 MG, BID (2X DAILY)
     Route: 065

REACTIONS (6)
  - General physical health deterioration [Unknown]
  - Cardiac failure chronic [Recovered/Resolved]
  - Lipids abnormal [Unknown]
  - Blood glucose fluctuation [Unknown]
  - Diabetic foot [Unknown]
  - Myocardial ischaemia [Unknown]
